FAERS Safety Report 13900654 (Version 1)
Quarter: 2017Q3

REPORT INFORMATION
  Report Type: Other
  Country: CA (occurrence: CA)
  Receive Date: 20170824
  Receipt Date: 20170824
  Transmission Date: 20171127
  Serious: Yes (Other)
  Sender: FDA-Public Use
  Company Number: CA-APOTEX-2017AP016845

PATIENT
  Age: 57 Year
  Sex: Male

DRUGS (3)
  1. APO-RAMIPRIL [Suspect]
     Active Substance: RAMIPRIL
     Indication: PHARYNGEAL PARAESTHESIA
     Dosage: 50 MG, UNK
     Route: 065
  2. XOLAIR [Suspect]
     Active Substance: OMALIZUMAB
     Indication: ASTHMA
     Dosage: 375 MG, Q.2W.
     Route: 058
  3. APO-RAMIPRIL [Suspect]
     Active Substance: RAMIPRIL
     Indication: HYPERTENSION
     Dosage: 10 UNK, UNK
     Route: 065

REACTIONS (7)
  - Injection site pain [Recovered/Resolved]
  - Myalgia [Recovered/Resolved]
  - Injection site discomfort [Recovered/Resolved]
  - Pain in extremity [Recovered/Resolved]
  - Blood pressure increased [Recovered/Resolved]
  - Headache [Recovered/Resolved]
  - Pharyngeal paraesthesia [Recovered/Resolved]
